FAERS Safety Report 7525656-6 (Version None)
Quarter: 2011Q2

REPORT INFORMATION
  Report Type: 
  Country: None (occurrence: None)
  Receive Date: 20110606
  Receipt Date: 20110524
  Transmission Date: 20111010
  Serious: Yes (Other)
  Sender: FDA-Public Use
  Company Number: PHHY2011BR45929

PATIENT
  Sex: Female

DRUGS (7)
  1. EXFORGE [Suspect]
     Dosage: 1 DF, 320 MG OF VALSARTAN/ 25 MG OF AMLODIPINE
  2. ATENOLOL [Concomitant]
     Dosage: 1 DF PER DAY
  3. SIMVASTATIN [Concomitant]
     Dosage: 1 DF PER DAY
  4. ASPIRIN [Concomitant]
     Dosage: 1 DF PER DAY
  5. CESTRATE [Concomitant]
     Dosage: 3 DF A DAY
  6. HYDROCHLOROTHIAZIDE [Concomitant]
     Dosage: 1 DF IN THE MORNING
  7. DIACLAR [Concomitant]
     Dosage: 1 DF A DAY

REACTIONS (3)
  - HYPERTENSION [None]
  - INFARCTION [None]
  - MALAISE [None]
